FAERS Safety Report 8247931-2 (Version None)
Quarter: 2012Q1

REPORT INFORMATION
  Report Type: 
  Country: None (occurrence: None)
  Receive Date: 20120330
  Receipt Date: 20120322
  Transmission Date: 20120608
  Serious: Yes (Hospitalization)
  Sender: FDA-Public Use
  Company Number: US-BAYER-2012-028773

PATIENT
  Age: 30 Year
  Sex: Female

DRUGS (6)
  1. ZANAFLEX [Concomitant]
  2. GEODON [Concomitant]
  3. CYMBALTA [Concomitant]
  4. YASMIN [Suspect]
     Dosage: UNK
     Dates: start: 20081101
  5. ATIVAN [Concomitant]
  6. WELLBUTRIN [Concomitant]

REACTIONS (3)
  - CHEST PAIN [None]
  - DYSPNOEA [None]
  - PULMONARY EMBOLISM [None]
